FAERS Safety Report 7175315-7 (Version None)
Quarter: 2010Q4

REPORT INFORMATION
  Report Type: 
  Country: None (occurrence: None)
  Receive Date: 20101220
  Receipt Date: 20100305
  Transmission Date: 20110411
  Serious: No
  Sender: FDA-Public Use
  Company Number: US-AMGEN-TCS397752

PATIENT

DRUGS (1)
  1. ENBREL [Suspect]
     Indication: RHEUMATOID ARTHRITIS
     Dosage: UNK UNK, UNK
     Dates: start: 20100109

REACTIONS (5)
  - ASTHENIA [None]
  - DRUG INEFFECTIVE [None]
  - FATIGUE [None]
  - HEADACHE [None]
  - TREMOR [None]
